FAERS Safety Report 4541880-9 (Version None)
Quarter: 2004Q4

REPORT INFORMATION
  Report Type: 
  Country: None (occurrence: None)
  Receive Date: 20041227
  Receipt Date: 20041215
  Transmission Date: 20050328
  Serious: Yes (Hospitalization, Other)
  Sender: FDA-Public Use
  Company Number: 2004232908BE

PATIENT
  Age: 84 Year
  Sex: Female
  Weight: 63 kg

DRUGS (3)
  1. AROMASIN [Suspect]
     Indication: BREAST CANCER RECURRENT
     Dosage: 25 MG (25 MG, QD), ORAL
     Route: 048
     Dates: start: 20030801, end: 20040601
  2. ASPIRIN [Concomitant]
  3. AMLODIPINE BESYLATE [Concomitant]

REACTIONS (8)
  - ANKLE FRACTURE [None]
  - DIZZINESS [None]
  - FALL [None]
  - FATIGUE [None]
  - INFLAMMATION [None]
  - PLEURAL EFFUSION [None]
  - RESPIRATORY DISORDER [None]
  - VERTIGO [None]
